FAERS Safety Report 8335149-4 (Version None)
Quarter: 2012Q2

REPORT INFORMATION
  Report Type: 
  Country: None (occurrence: None)
  Receive Date: 20120503
  Receipt Date: 20120418
  Transmission Date: 20120825
  Serious: Yes (Congenital Anomaly)
  Sender: FDA-Public Use
  Company Number: DE-WATSON-2012-06915

PATIENT
  Sex: Male
  Weight: 3.04 kg

DRUGS (8)
  1. SEDACUR [Concomitant]
     Indication: RESTLESSNESS
     Dosage: UNK
     Route: 064
  2. ZOLPIDEM [Concomitant]
     Indication: SLEEP DISORDER
     Dosage: THREE TIMES, UNKNOWN DOSAGE
     Route: 064
  3. FOLIC ACID [Concomitant]
     Indication: PROPHYLAXIS OF NEURAL TUBE DEFECT
     Dosage: 0.4 MG, DAILY
     Route: 064
  4. VALIUM [Concomitant]
     Indication: RESTLESSNESS
     Dosage: 0.5 MG DAILY, THREE TIMES AT THE END OF JULY
     Route: 064
  5. FLUOXETINE HCL [Suspect]
     Indication: DEPRESSION
     Dosage: ^20 [MG/D (-10) ]/ TILL WK 12: 20MG/D, THEN 10 MG/D^ ]
     Route: 064
     Dates: start: 20100130, end: 20100817
  6. RENNIE                             /00751519/ [Concomitant]
     Indication: GASTROOESOPHAGEAL REFLUX DISEASE
     Dosage: UNK
     Route: 064
  7. MOVICOL                            /01625101/ [Concomitant]
     Indication: CONSTIPATION
     Dosage: UNK
     Route: 064
  8. LEVOTHYROXINE BIOGARAN [Concomitant]
     Indication: HYPOTHYROIDISM
     Dosage: 50 UG/D, DAILY
     Route: 064

REACTIONS (1)
  - TRANSPOSITION OF THE GREAT VESSELS [None]
